FAERS Safety Report 6022726-9 (Version None)
Quarter: 2008Q4

REPORT INFORMATION
  Report Type: 
  Country: None (occurrence: None)
  Receive Date: 20081230
  Receipt Date: 20081217
  Transmission Date: 20090506
  Serious: Yes (Other)
  Sender: FDA-Public Use
  Company Number: CA-PFIZER INC-2005104382

PATIENT

DRUGS (3)
  1. SUNITINIB MALATE [Suspect]
     Indication: METASTATIC RENAL CELL CARCINOMA
     Dosage: 50 MG, 1X/DAY
     Route: 048
     Dates: start: 20050627
  2. TINZAPARIN SODIUM [Concomitant]
     Indication: THROMBOSIS
     Dosage: UNK
     Route: 058
     Dates: start: 20050603
  3. ACETAMINOPHEN [Concomitant]
     Dosage: UNK
     Route: 048
     Dates: start: 20040501, end: 20050628

REACTIONS (2)
  - DIARRHOEA [None]
  - HEPATITIS [None]
